FAERS Safety Report 21443068 (Version 1)
Quarter: 2022Q4

REPORT INFORMATION
  Report Type: Spontaneous
  Country: US (occurrence: US)
  Receive Date: 20221012
  Receipt Date: 20221012
  Transmission Date: 20230112
  Serious: Yes (Other)
  Sender: FDA-Public Use
  Company Number: None

PATIENT
  Age: 53 Year
  Sex: Female

DRUGS (3)
  1. MYCOPHENOLATE MOFETIL [Suspect]
     Active Substance: MYCOPHENOLATE MOFETIL
     Indication: Immunosuppressant drug therapy
     Dosage: UNK
     Route: 065
  2. PREDNISONE [Suspect]
     Active Substance: PREDNISONE
     Indication: Immunosuppressant drug therapy
     Dosage: UNK
     Route: 065
  3. IMIQUIMOD [Concomitant]
     Active Substance: IMIQUIMOD
     Indication: Immunosuppressant drug therapy
     Dosage: UNK, L(3 TIMES WEEKLY) FOR 3 MONTHS
     Route: 061

REACTIONS (4)
  - Epidermodysplasia verruciformis [Recovered/Resolved]
  - Anogenital warts [Recovered/Resolved]
  - Acanthoma [Recovered/Resolved]
  - Papilloma viral infection [Recovered/Resolved]
